FAERS Safety Report 23981320 (Version 1)
Quarter: 2024Q2

REPORT INFORMATION
  Report Type: Spontaneous
  Country: US (occurrence: None)
  Receive Date: 20240614
  Receipt Date: 20240614
  Transmission Date: 20240716
  Serious: Yes (Other)
  Sender: FDA-Public Use
  Company Number: None

PATIENT
  Age: 75 Year
  Sex: Male
  Weight: 78.9 kg

DRUGS (1)
  1. TECARTUS [Suspect]
     Active Substance: BREXUCABTAGENE AUTOLEUCEL
     Indication: Mantle cell lymphoma
     Dosage: 68 ML MILLILTRE (S) ONCE IBNTRAVENOUS?
     Route: 042
     Dates: start: 20220527, end: 20220527

REACTIONS (4)
  - Neutropenia [None]
  - Squamous cell carcinoma [None]
  - Lymphadenopathy [None]
  - Limb injury [None]

NARRATIVE: CASE EVENT DATE: 20220707
